FAERS Safety Report 8231438-2 (Version None)
Quarter: 2012Q1

REPORT INFORMATION
  Report Type: 
  Country: None (occurrence: None)
  Receive Date: 20120323
  Receipt Date: 20120319
  Transmission Date: 20120608
  Serious: Yes (Other)
  Sender: FDA-Public Use
  Company Number: NO-PFIZER INC-2012035113

PATIENT
  Age: 20 Year
  Sex: Female

DRUGS (1)
  1. LEVONORGESTREL AND ETHINYL ESTRADIOL [Suspect]
     Dosage: UNK
     Dates: start: 20110901

REACTIONS (2)
  - OCULAR ICTERUS [None]
  - PRURITUS [None]
